FAERS Safety Report 5093940-4 (Version None)
Quarter: 2006Q3

REPORT INFORMATION
  Report Type: 
  Country: None (occurrence: None)
  Receive Date: 20060831
  Receipt Date: 20051102
  Transmission Date: 20061208
  Serious: Yes (Hospitalization)
  Sender: FDA-Public Use
  Company Number: PHBS2005US16220

PATIENT
  Sex: Female
  Weight: 2.307 kg

DRUGS (4)
  1. MIACALCIC/CALCITONIN-SANDOZ MIAC+SPRAY [Suspect]
     Route: 064
  2. LASIX [Concomitant]
     Route: 064
  3. MAGNESIUM [Concomitant]
     Route: 064
  4. PHOSPHORUS [Concomitant]
     Route: 064

REACTIONS (4)
  - BLOOD PARATHYROID HORMONE DECREASED [None]
  - DRUG DISPENSING ERROR [None]
  - DRUG EXPOSURE DURING PREGNANCY [None]
  - PREMATURE BABY [None]
